FAERS Safety Report 21136244 (Version 1)
Quarter: 2022Q3

REPORT INFORMATION
  Report Type: Spontaneous
  Country: US (occurrence: US)
  Receive Date: 20220727
  Receipt Date: 20220727
  Transmission Date: 20221027
  Serious: Yes (Other)
  Sender: FDA-Public Use
  Company Number: US-MLMSERVICE-20220714-3671636-1

PATIENT
  Age: 68 Year
  Sex: Male

DRUGS (3)
  1. CISPLATIN [Suspect]
     Active Substance: CISPLATIN
     Indication: Keratinising squamous cell carcinoma of nasopharynx
     Dosage: CUMULATIVE DOSE:2 CYCLICAL
     Dates: start: 2018
  2. DOCETAXEL [Suspect]
     Active Substance: DOCETAXEL
     Indication: Squamous cell carcinoma of head and neck
     Dosage: CUMULATIVE DOSE:2 CYCLICAL
     Dates: start: 2018
  3. CISPLATIN [Suspect]
     Active Substance: CISPLATIN
     Indication: Squamous cell carcinoma of head and neck
     Dosage: CUMULATIVE DOSE:2 CYCLICAL
     Dates: start: 2018

REACTIONS (3)
  - Necrotising colitis [Unknown]
  - Neutropenic colitis [Unknown]
  - Off label use [Unknown]

NARRATIVE: CASE EVENT DATE: 20180101
